FAERS Safety Report 5591110-4 (Version None)
Quarter: 2008Q1

REPORT INFORMATION
  Report Type: 
  Country: None (occurrence: None)
  Receive Date: 20080111
  Receipt Date: 20080111
  Transmission Date: 20080703
  Serious: Yes (Hospitalization)
  Sender: FDA-Public Use
  Company Number: None

PATIENT
  Sex: Female
  Weight: 68 kg

DRUGS (3)
  1. CARBOPLATIN [Suspect]
     Dosage: 546 MG
     Dates: end: 20071227
  2. TAXOL [Suspect]
     Dosage: 303 MG
     Dates: end: 20071227
  3. VANCOMYCIN [Concomitant]

REACTIONS (6)
  - ASCITES [None]
  - CLOSTRIDIAL INFECTION [None]
  - COMPUTERISED TOMOGRAM ABDOMEN ABNORMAL [None]
  - DISEASE PROGRESSION [None]
  - PLEURAL EFFUSION [None]
  - PSEUDOMEMBRANOUS COLITIS [None]
